FAERS Safety Report 6227937-5 (Version None)
Quarter: 2009Q2

REPORT INFORMATION
  Report Type: 
  Country: None (occurrence: None)
  Receive Date: 20090612
  Receipt Date: 20090602
  Transmission Date: 20091009
  Serious: Yes (Other)
  Sender: FDA-Public Use
  Company Number: DE-PFIZER INC-2009222179

PATIENT
  Age: 76 Year

DRUGS (3)
  1. CARDULAR [Suspect]
     Indication: HYPERTENSION
     Dosage: 8 MG, 1X/DAY
     Route: 048
     Dates: start: 20090401
  2. EBRANTIL [Concomitant]
     Dosage: UNK
  3. MICARDIS [Concomitant]
     Dosage: 80 MG, UNK

REACTIONS (2)
  - BLOOD PRESSURE INCREASED [None]
  - DRUG INEFFECTIVE [None]
